FAERS Safety Report 8949394 (Version 2)
Quarter: 2012Q4

REPORT INFORMATION
  Report Type: 
  Country: JP (occurrence: JP)
  Receive Date: 20121206
  Receipt Date: 20121228
  Transmission Date: 20130627
  Serious: Yes (Hospitalization, Other)
  Sender: FDA-Public Use
  Company Number: JP-EISAI INC-E2020-11705-SPO-JP

PATIENT
  Age: 87 Year
  Sex: Female

DRUGS (10)
  1. ARICEPT [Suspect]
     Indication: DRUG USE FOR UNKNOWN INDICATION
     Dosage: unknown
     Route: 048
     Dates: start: 201206, end: 2012
  2. ARICEPT [Suspect]
     Route: 048
     Dates: start: 20121026, end: 20121128
  3. ARICEPT [Suspect]
     Route: 048
     Dates: start: 20121129, end: 20121201
  4. VIVIANT [Suspect]
     Indication: DRUG USE FOR UNKNOWN INDICATION
     Route: 048
     Dates: start: 20121113
  5. TRAMACET [Suspect]
     Indication: DRUG USE FOR UNKNOWN INDICATION
     Dosage: 1 tablet (dose unknown) BID
     Route: 048
     Dates: start: 20120704, end: 20121204
  6. BONALON [Suspect]
     Indication: COMPRESSION FRACTURE
     Route: 048
     Dates: start: 20121113, end: 20121204
  7. PREDNISOLONE [Concomitant]
     Dosage: unknown
     Route: 048
     Dates: start: 20050401
  8. RIMATIL [Concomitant]
     Dosage: unknown
     Dates: start: 20110903
  9. LYRICA [Concomitant]
     Dosage: unknown
     Dates: start: 20120515
  10. BLOPRESS [Concomitant]
     Dosage: unknown
     Dates: start: 20080412

REACTIONS (1)
  - Ileus [Recovering/Resolving]
